FAERS Safety Report 4615181-4 (Version None)
Quarter: 2005Q1

REPORT INFORMATION
  Report Type: 
  Country: None (occurrence: None)
  Receive Date: 20050322
  Receipt Date: 20050314
  Transmission Date: 20050727
  Serious: Yes (Life-Threatening)
  Sender: FDA-Public Use
  Company Number: NL-GLAXOSMITHKLINE-B0375508A

PATIENT
  Age: 56 Year
  Sex: Male

DRUGS (4)
  1. SALBUTAMOL SULPHATE [Suspect]
     Indication: ILL-DEFINED DISORDER
     Route: 055
     Dates: start: 20041228
  2. FLUTICASONE PROPIONATE [Concomitant]
     Indication: ILL-DEFINED DISORDER
     Dosage: 50MCG UNKNOWN
     Route: 055
  3. TIOTROPIUM BROMIDE [Concomitant]
     Indication: ILL-DEFINED DISORDER
     Dosage: 18MCG UNKNOWN
     Route: 055
  4. PANTOPRAZOLE [Concomitant]
     Indication: ILL-DEFINED DISORDER
     Route: 065

REACTIONS (2)
  - BRONCHOSPASM [None]
  - STATUS ASTHMATICUS [None]
